FAERS Safety Report 18090413 (Version 1)
Quarter: 2020Q3

REPORT INFORMATION
  Report Type: Spontaneous
  Country: FR (occurrence: FR)
  Receive Date: 20200730
  Receipt Date: 20200730
  Transmission Date: 20201103
  Serious: Yes (Hospitalization)
  Sender: FDA-Public Use
  Company Number: FR-TEVA-2020-FR-1806413

PATIENT
  Age: 61 Year
  Sex: Female
  Weight: 129 kg

DRUGS (18)
  1. MUCOMYSTENDO [Concomitant]
     Active Substance: ACETYLCYSTEINE
  2. ACTISKENAN [Concomitant]
     Active Substance: MORPHINE SULFATE
     Dates: start: 20200613
  3. LASILIX [Concomitant]
     Active Substance: FUROSEMIDE
     Dates: end: 20200618
  4. NOVORAPID [Concomitant]
     Active Substance: INSULIN ASPART
     Dates: end: 20200608
  5. EUTHYROX [Concomitant]
     Active Substance: LEVOTHYROXINE SODIUM
  6. ELIQUIS [Concomitant]
     Active Substance: APIXABAN
     Route: 048
     Dates: start: 20200520, end: 20200608
  7. DAPTOMYCINE [Concomitant]
     Active Substance: DAPTOMYCIN
     Dates: start: 20200616
  8. VENTOLINE [Concomitant]
     Active Substance: ALBUTEROL
  9. HUMALOG [Concomitant]
     Active Substance: INSULIN LISPRO
     Dates: start: 20200608
  10. IRBESARTAN. [Concomitant]
     Active Substance: IRBESARTAN
     Route: 048
     Dates: end: 20200604
  11. CALCIPARINE [Concomitant]
     Active Substance: HEPARIN CALCIUM
     Dates: start: 20200616, end: 20200618
  12. LANTUS [Concomitant]
     Active Substance: INSULIN GLARGINE
     Dates: end: 20200608
  13. TOUJEO [Concomitant]
     Active Substance: INSULIN GLARGINE
     Dates: start: 20200608
  14. CHLORHYDRATE DE NICARDIPINE [Concomitant]
     Dosage: IF TA} 160/90
  15. LOVENOX [Concomitant]
     Active Substance: ENOXAPARIN SODIUM
     Dates: start: 20200608, end: 20200616
  16. INNOVAIR [Concomitant]
     Active Substance: BECLOMETHASONE DIPROPIONATE\FORMOTEROL
  17. AMOXICILLINE [Suspect]
     Active Substance: AMOXICILLIN
     Indication: ARTHRITIS
     Dates: start: 20200520, end: 20200614
  18. PEVARYL [Concomitant]
     Active Substance: ECONAZOLE NITRATE

REACTIONS (1)
  - Acute kidney injury [Recovered/Resolved]

NARRATIVE: CASE EVENT DATE: 20200614
